FAERS Safety Report 9315117 (Version 4)
Quarter: 2013Q3

REPORT INFORMATION
  Report Type: Spontaneous
  Country: US (occurrence: US)
  Receive Date: 20130529
  Receipt Date: 20130719
  Transmission Date: 20140515
  Serious: Yes (Hospitalization)
  Sender: FDA-Public Use
  Company Number: US-AMGEN-USASP2013037375

PATIENT
  Age: 52 Year
  Sex: Male
  Weight: 86.62 kg

DRUGS (17)
  1. PROCRIT [Suspect]
     Indication: NEPHROGENIC ANAEMIA
     Dosage: 20000 UNIT, Q2WK
     Route: 058
     Dates: start: 20130205, end: 20130521
  2. SENSIPAR [Concomitant]
     Indication: HYPERPARATHYROIDISM SECONDARY
     Dosage: UNK
  3. CELLCEPT                           /01275102/ [Concomitant]
     Indication: RENAL TRANSPLANT
     Dosage: 1000 MG, BID
     Route: 065
     Dates: start: 20060526
  4. PROGRAF [Concomitant]
     Indication: RENAL TRANSPLANT
     Dosage: 4 MG, BID
     Route: 065
     Dates: start: 2005
  5. PREDNISONE [Concomitant]
     Indication: RENAL TRANSPLANT
     Dosage: 10 MG, QD
     Route: 065
     Dates: start: 2005
  6. COZAAR [Concomitant]
     Indication: HYPERTENSION
     Dosage: 100 MG, QD
     Route: 065
     Dates: start: 2005
  7. METOPROLOL [Concomitant]
     Dosage: UNK
  8. AMLODIPINE [Concomitant]
     Dosage: UNK
  9. ZAROXOLYN [Concomitant]
     Dosage: UNK
  10. TORSEMIDE [Concomitant]
     Dosage: UNK
  11. OMEPRAZOLE [Concomitant]
     Dosage: UNK
  12. MINOXIDIL [Concomitant]
     Dosage: UNK
  13. MVI [Concomitant]
     Dosage: UNK
  14. FISH OIL [Concomitant]
     Dosage: UNK
  15. VIT C                              /00008001/ [Concomitant]
     Dosage: UNK
  16. TACROLIMUS [Concomitant]
     Dosage: UNK
     Route: 065
     Dates: start: 20060525
  17. CLONIDINE [Concomitant]
     Dosage: UNK

REACTIONS (4)
  - Asthenia [Unknown]
  - Anaemia [Unknown]
  - Haemoglobin decreased [Unknown]
  - Drug ineffective [Unknown]
